FAERS Safety Report 20758377 (Version 14)
Quarter: 2022Q4

REPORT INFORMATION
  Report Type: Report from Study
  Country: MY (occurrence: None)
  Receive Date: 20220427
  Receipt Date: 20221014
  Transmission Date: 20230113
  Serious: Yes (Hospitalization)
  Sender: FDA-Public Use
  Company Number: MY-Eisai Medical Research-EC-2022-113535

PATIENT
  Age: 64 Year
  Sex: Female
  Weight: 57.4 kg

DRUGS (16)
  1. LENVATINIB [Suspect]
     Active Substance: LENVATINIB
     Indication: Clear cell renal cell carcinoma
     Route: 048
     Dates: start: 20220308, end: 20220418
  2. LENVATINIB [Suspect]
     Active Substance: LENVATINIB
     Route: 048
     Dates: start: 20220525
  3. PEMBROLIZUMAB [Suspect]
     Active Substance: PEMBROLIZUMAB
     Indication: Clear cell renal cell carcinoma
     Route: 041
     Dates: start: 20220308, end: 20220308
  4. BELZUTIFAN [Suspect]
     Active Substance: BELZUTIFAN
     Indication: Clear cell renal cell carcinoma
     Route: 048
     Dates: start: 20220308, end: 20220418
  5. BELZUTIFAN [Suspect]
     Active Substance: BELZUTIFAN
     Route: 048
     Dates: start: 20220525
  6. VENTOLIN [Concomitant]
     Active Substance: ALBUTEROL SULFATE
     Dates: start: 200001
  7. METFORMIN HYDROCHLORIDE [Concomitant]
     Active Substance: METFORMIN HYDROCHLORIDE
     Dates: start: 200605
  8. MIXTARD [INSULIN;ISOPHANE INSULIN] [Concomitant]
     Route: 030
     Dates: start: 201802
  9. METHYLCOBALAMIN [Concomitant]
     Active Substance: METHYLCOBALAMIN
  10. TRAMADOL HYDROCHLORIDE [Concomitant]
     Active Substance: TRAMADOL HYDROCHLORIDE
     Dates: start: 202109
  11. SIMVASTATIN [Concomitant]
     Active Substance: SIMVASTATIN
     Dates: start: 200605
  12. AMLODIPINE [Concomitant]
     Active Substance: AMLODIPINE BESYLATE
     Dates: start: 200605
  13. NUELIN [THEOPHYLLINE] [Concomitant]
     Dates: start: 201802
  14. METOCLOPRAMIDE [Concomitant]
     Active Substance: METOCLOPRAMIDE
     Dates: start: 20220419
  15. TRAMADOL [Concomitant]
     Active Substance: TRAMADOL
     Dates: start: 20220419, end: 20220419
  16. OMEPRAZOLE MAGNESIUM [Concomitant]
     Active Substance: OMEPRAZOLE MAGNESIUM
     Dates: start: 20220419, end: 20220419

REACTIONS (4)
  - Sinus tachycardia [Not Recovered/Not Resolved]
  - Anaemia [Recovered/Resolved]
  - Hypertransaminasaemia [Recovered/Resolved]
  - Acute kidney injury [Recovered/Resolved]

NARRATIVE: CASE EVENT DATE: 20220419
